FAERS Safety Report 10812128 (Version 1)
Quarter: 2015Q1

REPORT INFORMATION
  Report Type: Spontaneous
  Country: US (occurrence: None)
  Receive Date: 20150212
  Receipt Date: 20150212
  Transmission Date: 20150721
  Serious: No
  Sender: FDA-Public Use
  Company Number: None

PATIENT
  Age: 63 Year
  Sex: Male
  Weight: 107.96 kg

DRUGS (1)
  1. INVOKANA [Suspect]
     Active Substance: CANAGLIFLOZIN
     Dosage: 1 PILL ONCE DAILY TAKEN BY MOUTH

REACTIONS (3)
  - Drug ineffective [None]
  - Haemorrhage [None]
  - Fungal infection [None]

NARRATIVE: CASE EVENT DATE: 20140818
